FAERS Safety Report 11971306 (Version 4)
Quarter: 2016Q1

REPORT INFORMATION
  Report Type: Spontaneous
  Country: IT (occurrence: IT)
  Receive Date: 20160128
  Receipt Date: 20160223
  Transmission Date: 20160526
  Serious: Yes (Death, Hospitalization, Other)
  Sender: FDA-Public Use
  Company Number: IT-009507513-1601ITA009132

PATIENT
  Age: 64 Year
  Sex: Female
  Weight: 78 kg

DRUGS (4)
  1. PERFALGAN [Concomitant]
     Active Substance: ACETAMINOPHEN
     Indication: POSTOPERATIVE ANALGESIA
     Dosage: UNK
     Route: 042
     Dates: start: 20160120, end: 20160120
  2. TEMGESIC [Concomitant]
     Active Substance: BUPRENORPHINE HYDROCHLORIDE
     Dosage: UNK
     Dates: start: 20160120, end: 20160120
  3. AMOXICILLIN (+) CLAVULANATE POTASSIUM [Concomitant]
     Active Substance: AMOXICILLIN\CLAVULANATE POTASSIUM
     Indication: ANTIBIOTIC PROPHYLAXIS
     Dosage: STRENGTH: 1000 MG+200 MG
     Dates: start: 20160120, end: 20160120
  4. BRIDION [Suspect]
     Active Substance: SUGAMMADEX
     Indication: NEUROMUSCULAR BLOCKADE REVERSAL
     Dosage: 2 MCG/KG, TOTAL
     Route: 042
     Dates: start: 20160120, end: 20160120

REACTIONS (2)
  - Cardiac arrest [Fatal]
  - Bradycardia [Fatal]

NARRATIVE: CASE EVENT DATE: 20160120
